FAERS Safety Report 6599303-4 (Version None)
Quarter: 2010Q1

REPORT INFORMATION
  Report Type: 
  Country: None (occurrence: None)
  Receive Date: 20100224
  Receipt Date: 20100216
  Transmission Date: 20100710
  Serious: Yes (Hospitalization)
  Sender: FDA-Public Use
  Company Number: US-BAYER-201012918NA

PATIENT
  Age: 48 Year
  Sex: Female
  Weight: 61 kg

DRUGS (20)
  1. SORAFENIB [Suspect]
     Indication: METASTATIC CARCINOID TUMOUR
     Dosage: TOTAL DAILY DOSE: 400 MG  UNIT DOSE: 200 MG
     Route: 048
     Dates: start: 20100114, end: 20100123
  2. SORAFENIB [Suspect]
     Dosage: TOTAL DAILY DOSE: 400 MG  UNIT DOSE: 200 MG
     Route: 048
     Dates: start: 20100209
  3. RAD001 [Suspect]
     Indication: METASTATIC CARCINOID TUMOUR
     Dosage: TOTAL DAILY DOSE: 10 MG
     Route: 048
     Dates: start: 20100114, end: 20100123
  4. RAD001 [Suspect]
     Dosage: TOTAL DAILY DOSE: 10 MG
     Route: 048
     Dates: start: 20100209
  5. CYANOCOBALAMIN [Concomitant]
  6. CALCIUM CARBONATE [Concomitant]
  7. OPIUM TINCTURE [Concomitant]
  8. GABAPENTIN [Concomitant]
  9. LOPERAMIDE [Concomitant]
  10. FUROSEMIDE [Concomitant]
  11. DIPHENOXYLATE HCL W/ ATROPINE SULFATE [Concomitant]
  12. LORAZEPAM [Concomitant]
  13. ENOXAPARIN SODIUM [Concomitant]
  14. MULTI-VITAMINS [Concomitant]
  15. OXYCODONE [Concomitant]
  16. PANCRELIPASE [Concomitant]
  17. PROMETHAZINE [Concomitant]
  18. POTASSIUM CHLORIDE [Concomitant]
     Dosage: IMMEDIATE RELEASE
  19. BUPROPION HCL [Concomitant]
     Dosage: SUSTAINED RELEASE
  20. ONDANSETRON HCL [Concomitant]
     Indication: NAUSEA

REACTIONS (5)
  - ADHESION [None]
  - FAECES DISCOLOURED [None]
  - HAEMATOCRIT DECREASED [None]
  - INTESTINAL OBSTRUCTION [None]
  - PERITONEAL DISORDER [None]
